FAERS Safety Report 5607620-7 (Version None)
Quarter: 2008Q1

REPORT INFORMATION
  Report Type: 
  Country: None (occurrence: None)
  Receive Date: 20080128
  Receipt Date: 20080128
  Transmission Date: 20080703
  Serious: Yes (Hospitalization)
  Sender: FDA-Public Use
  Company Number: None

PATIENT
  Age: 82 Year
  Sex: Male
  Weight: 88.4 kg

DRUGS (2)
  1. BUMETANIDE [Suspect]
     Indication: HYPERTENSION
     Dosage: 1 TABLET DAILY PO
     Route: 048
     Dates: start: 20071116, end: 20071205
  2. KCL TAB [Suspect]
     Dosage: 1 TABLET DAILY PO
     Route: 048
     Dates: start: 20071116, end: 20071205

REACTIONS (14)
  - ACUTE PRERENAL FAILURE [None]
  - ASTHENIA [None]
  - BLOOD POTASSIUM INCREASED [None]
  - DEHYDRATION [None]
  - DRY SKIN [None]
  - ELECTROCARDIOGRAM QRS COMPLEX PROLONGED [None]
  - ELECTROLYTE IMBALANCE [None]
  - GAIT DISTURBANCE [None]
  - HYPOTENSION [None]
  - INCORRECT DOSE ADMINISTERED [None]
  - MUCOSAL DRYNESS [None]
  - ORAL INTAKE REDUCED [None]
  - PALLOR [None]
  - VENTRICULAR ARRHYTHMIA [None]
